FAERS Safety Report 4624433-3 (Version None)
Quarter: 2005Q1

REPORT INFORMATION
  Report Type: 
  Country: None (occurrence: None)
  Receive Date: 20050330
  Receipt Date: 20050330
  Transmission Date: 20050727
  Serious: Yes (Hospitalization)
  Sender: FDA-Public Use
  Company Number: None

PATIENT
  Age: 73 Year
  Sex: Female
  Weight: 90 kg

DRUGS (1)
  1. ACYCLOVIR [Suspect]
     Indication: HERPES ZOSTER
     Dosage: 900MG   Q8H   INTRAVENOU
     Route: 042
     Dates: start: 20040719, end: 20040721

REACTIONS (3)
  - BLOOD CREATINE INCREASED [None]
  - ENCEPHALOPATHY [None]
  - RENAL IMPAIRMENT [None]
